FAERS Safety Report 15538299 (Version 1)
Quarter: 2018Q4

REPORT INFORMATION
  Report Type: Spontaneous
  Country: US (occurrence: US)
  Receive Date: 20181022
  Receipt Date: 20181022
  Transmission Date: 20190205
  Serious: No
  Sender: FDA-Public Use
  Company Number: US-SHIRE-US201840348

PATIENT
  Sex: Female

DRUGS (1)
  1. GATTEX [Suspect]
     Active Substance: TEDUGLUTIDE\WATER
     Indication: PRODUCT USED FOR UNKNOWN INDICATION
     Dosage: 0.2477 (UNIT UNSPECIFIED)
     Route: 065
     Dates: start: 20180827

REACTIONS (2)
  - Hiatus hernia [Recovering/Resolving]
  - Abnormal faeces [Recovering/Resolving]
